FAERS Safety Report 9853015 (Version 1)
Quarter: 2014Q1

REPORT INFORMATION
  Report Type: Spontaneous
  Country: US (occurrence: US)
  Receive Date: 20140129
  Receipt Date: 20140129
  Transmission Date: 20141002
  Serious: No
  Sender: FDA-Public Use
  Company Number: US-ASTRAZENECA-2014SE04285

PATIENT
  Age: 64 Year
  Sex: Female

DRUGS (2)
  1. BRILINTA [Suspect]
     Indication: ACUTE CORONARY SYNDROME
     Route: 048
  2. ASPIRIN [Suspect]
     Dosage: 325 MG UNKNOWN FREQUENCY

REACTIONS (3)
  - Ocular hyperaemia [Unknown]
  - Sneezing [Unknown]
  - Intentional drug misuse [Unknown]
